FAERS Safety Report 6804215-4 (Version None)
Quarter: 2010Q2

REPORT INFORMATION
  Report Type: 
  Country: None (occurrence: None)
  Receive Date: 20100628
  Receipt Date: 20070208
  Transmission Date: 20101027
  Serious: No
  Sender: FDA-Public Use
  Company Number: US-PFIZER INC-2007011005

PATIENT

DRUGS (3)
  1. GEODON [Suspect]
  2. CLONOPIN [Concomitant]
  3. BENTYL [Concomitant]

REACTIONS (1)
  - DYSKINESIA [None]
